FAERS Safety Report 18471983 (Version 1)
Quarter: 2020Q4

REPORT INFORMATION
  Report Type: Other
  Country: CA (occurrence: CA)
  Receive Date: 20201105
  Receipt Date: 20201105
  Transmission Date: 20210114
  Serious: Yes (Other)
  Sender: FDA-Public Use
  Company Number: CA-CELLTRION INC.-2020CA030251

PATIENT

DRUGS (16)
  1. ENBREL [Suspect]
     Active Substance: ETANERCEPT
     Indication: RHEUMATOID ARTHRITIS
     Route: 065
  2. METHOTREXATE. [Concomitant]
     Active Substance: METHOTREXATE
     Indication: RHEUMATOID ARTHRITIS
     Route: 065
  3. TOFACITINIB CITRATE [Suspect]
     Active Substance: TOFACITINIB CITRATE
     Indication: RHEUMATOID ARTHRITIS
     Dosage: 5 MILLIGRAM, 2 EVERY 1 DAY
     Route: 048
  4. ORENCIA [Concomitant]
     Active Substance: ABATACEPT
     Indication: PRODUCT USED FOR UNKNOWN INDICATION
     Route: 042
  5. MINOCIN [Suspect]
     Active Substance: MINOCYCLINE HYDROCHLORIDE
     Indication: RHEUMATOID ARTHRITIS
     Route: 065
  6. SIMPONI [Concomitant]
     Active Substance: GOLIMUMAB
     Indication: PRODUCT USED FOR UNKNOWN INDICATION
     Route: 058
  7. ACTEMRA [Suspect]
     Active Substance: TOCILIZUMAB
     Indication: RHEUMATOID ARTHRITIS
     Route: 065
  8. MYOCHRYSINE [Suspect]
     Active Substance: GOLD SODIUM THIOMALATE
     Indication: RHEUMATOID ARTHRITIS
     Route: 030
  9. HYDROXYCHLOROQUINE SULFATE. [Concomitant]
     Active Substance: HYDROXYCHLOROQUINE SULFATE
     Indication: PRODUCT USED FOR UNKNOWN INDICATION
     Route: 065
  10. RITUXIMAB (UNKNOWN) [Suspect]
     Active Substance: RITUXIMAB
     Indication: RHEUMATOID ARTHRITIS
     Route: 042
  11. STELARA [Suspect]
     Active Substance: USTEKINUMAB
     Indication: RHEUMATOID ARTHRITIS
     Route: 058
  12. ARAVA [Suspect]
     Active Substance: LEFLUNOMIDE
     Indication: RHEUMATOID ARTHRITIS
     Route: 065
  13. APREMILAST [Suspect]
     Active Substance: APREMILAST
     Indication: RHEUMATOID ARTHRITIS
     Route: 065
  14. CIMZIA [Suspect]
     Active Substance: CERTOLIZUMAB PEGOL
     Indication: RHEUMATOID ARTHRITIS
     Route: 058
  15. HUMIRA [Suspect]
     Active Substance: ADALIMUMAB
     Indication: RHEUMATOID ARTHRITIS
     Route: 058
  16. SALAZOPYRIN [Concomitant]
     Active Substance: SULFASALAZINE
     Indication: RHEUMATOID ARTHRITIS

REACTIONS (6)
  - General physical health deterioration [Not Recovered/Not Resolved]
  - Gastric disorder [Not Recovered/Not Resolved]
  - Sleep disorder [Not Recovered/Not Resolved]
  - Drug ineffective [Not Recovered/Not Resolved]
  - Fatigue [Not Recovered/Not Resolved]
  - Rheumatoid arthritis [Not Recovered/Not Resolved]
